FAERS Safety Report 20035987 (Version 5)
Quarter: 2022Q1

REPORT INFORMATION
  Report Type: Spontaneous
  Country: CA (occurrence: CA)
  Receive Date: 20211105
  Receipt Date: 20220217
  Transmission Date: 20220423
  Serious: Yes (Other)
  Sender: FDA-Public Use
  Company Number: CA-CELLTRION INC.-2021CA007969

PATIENT

DRUGS (9)
  1. INFLECTRA [Suspect]
     Active Substance: INFLIXIMAB-DYYB
     Indication: Ankylosing spondylitis
     Dosage: 335 MG, 0, 2, 6 THEN EVERY 8 WEEKS
     Route: 042
     Dates: start: 20210326
  2. INFLECTRA [Suspect]
     Active Substance: INFLIXIMAB-DYYB
     Dosage: 335 MG, 0, 2, 6 THEN EVERY 8 WEEKS
     Route: 042
     Dates: start: 20210507
  3. INFLECTRA [Suspect]
     Active Substance: INFLIXIMAB-DYYB
     Dosage: 335 MG, 0, 2, 6 THEN EVERY 8 WEEKS
     Route: 042
     Dates: start: 20210721
  4. INFLECTRA [Suspect]
     Active Substance: INFLIXIMAB-DYYB
     Dosage: 335 MG, 0, 2, 6 THEN EVERY 8 WEEKS
     Route: 042
     Dates: start: 20210910
  5. INFLECTRA [Suspect]
     Active Substance: INFLIXIMAB-DYYB
     Dosage: 335 MG, EVERY 6 WEEK
     Route: 042
     Dates: start: 20211104
  6. INFLECTRA [Suspect]
     Active Substance: INFLIXIMAB-DYYB
     Dosage: 335 MG EVERY 4 WEEK
     Route: 042
     Dates: start: 20211104
  7. INFLECTRA [Suspect]
     Active Substance: INFLIXIMAB-DYYB
     Dosage: 365 MG, EVERY 6 WEEK (SUPPOSED TO RECEIVE 335MG)
     Route: 042
     Dates: start: 20211215
  8. INFLECTRA [Suspect]
     Active Substance: INFLIXIMAB-DYYB
     Dosage: 335 MG EVERY 4 WEEK
     Route: 042
     Dates: start: 20220207
  9. TOZINAMERAN [Concomitant]
     Active Substance: TOZINAMERAN
     Indication: COVID-19 immunisation
     Dosage: UNK, SINGLE
     Dates: start: 20210713

REACTIONS (5)
  - Bronchitis [Not Recovered/Not Resolved]
  - Arthralgia [Unknown]
  - Therapeutic product effect incomplete [Unknown]
  - Off label use [Unknown]
  - Inappropriate schedule of product administration [Unknown]

NARRATIVE: CASE EVENT DATE: 20210101
